FAERS Safety Report 4681705-4 (Version None)
Quarter: 2005Q2

REPORT INFORMATION
  Report Type: 
  Country: None (occurrence: None)
  Receive Date: 20050602
  Receipt Date: 20050519
  Transmission Date: 20051028
  Serious: Yes (Hospitalization, Other)
  Sender: FDA-Public Use
  Company Number: 214651

PATIENT
  Age: 59 Year
  Sex: Female
  Weight: 101.6 kg

DRUGS (1)
  1. RAPTIVA [Suspect]
     Indication: PSORIASIS
     Dates: start: 20050302, end: 20050403

REACTIONS (3)
  - BLOOD URINE PRESENT [None]
  - ECCHYMOSIS [None]
  - FACTOR VIII INHIBITION [None]
